FAERS Safety Report 20970375 (Version 3)
Quarter: 2022Q3

REPORT INFORMATION
  Report Type: Spontaneous
  Country: US (occurrence: US)
  Receive Date: 20220616
  Receipt Date: 20220927
  Transmission Date: 20221026
  Serious: Yes (Hospitalization, Other)
  Sender: FDA-Public Use
  Company Number: US-SA-SAC20220606000577

PATIENT
  Age: 25 Year
  Sex: Female

DRUGS (2)
  1. CERDELGA [Suspect]
     Active Substance: ELIGLUSTAT
     Indication: Gaucher^s disease
     Dosage: 84 MG, BID
     Route: 048
     Dates: start: 202204
  2. METOCLOPRAMIDE [Concomitant]
     Active Substance: METOCLOPRAMIDE
     Dosage: UNK
     Dates: start: 2022

REACTIONS (5)
  - Device related infection [Unknown]
  - Perforation [Unknown]
  - Feeding tube user [Unknown]
  - Photophobia [Unknown]
  - Influenza [Unknown]

NARRATIVE: CASE EVENT DATE: 20220101
